FAERS Safety Report 25199658 (Version 1)
Quarter: 2025Q2

REPORT INFORMATION
  Report Type: Spontaneous
  Country: US (occurrence: US)
  Receive Date: 20250415
  Receipt Date: 20250415
  Transmission Date: 20250716
  Serious: Yes (Other)
  Sender: ELI LILLY AND CO
  Company Number: US-ELI_LILLY_AND_COMPANY-US202504005381

PATIENT

DRUGS (1)
  1. BASAGLAR [Suspect]
     Active Substance: INSULIN GLARGINE
     Indication: Latent autoimmune diabetes in adults
     Route: 065

REACTIONS (3)
  - Ketoacidosis [Unknown]
  - Anaphylactic reaction [Unknown]
  - Off label use [Unknown]
